FAERS Safety Report 7675240-9 (Version None)
Quarter: 2011Q3

REPORT INFORMATION
  Report Type: 
  Country: None (occurrence: None)
  Receive Date: 20110810
  Receipt Date: 20110804
  Transmission Date: 20111222
  Serious: Yes (Hospitalization)
  Sender: FDA-Public Use
  Company Number: FR-ABBOTT-11P-056-0844584-00

PATIENT
  Age: 1 Day
  Sex: Female

DRUGS (3)
  1. RITONAVIR [Suspect]
     Indication: MATERNAL EXPOSURE DURING PREGNANCY
     Route: 064
  2. ZIDOVUDINE [Suspect]
     Indication: MATERNAL EXPOSURE DURING PREGNANCY
     Route: 064
  3. ZIDOVUDINE [Suspect]
     Indication: PRODUCT USED FOR UNKNOWN INDICATION
     Dates: start: 20101105

REACTIONS (2)
  - EOSINOPHILIA [None]
  - MATERNAL EXPOSURE DURING PREGNANCY [None]
